FAERS Safety Report 9198379 (Version 1)
Quarter: 2013Q1

REPORT INFORMATION
  Report Type: Spontaneous
  Country: DE (occurrence: DE)
  Receive Date: 20130329
  Receipt Date: 20130329
  Transmission Date: 20140127
  Serious: Yes (Other)
  Sender: FDA-Public Use
  Company Number: DE-AMGEN-DEUSP2013005227

PATIENT
  Age: 56 Year
  Sex: Male

DRUGS (14)
  1. ENBREL [Suspect]
     Indication: RHEUMATOID ARTHRITIS
     Dosage: 50 MG, WEEKLY
     Route: 058
     Dates: start: 20080201
  2. ENBREL [Suspect]
     Dosage: UNK
  3. MTX                                /00113802/ [Concomitant]
     Dosage: 15 MG, UNK
  4. PANTOZOL [Concomitant]
     Dosage: UNK
  5. FOLIC ACID [Concomitant]
     Dosage: UNK
  6. ASS [Concomitant]
     Dosage: 100 MG, UNK
  7. EXFORGE [Concomitant]
     Dosage: 5 MG, UNK
  8. SIMVABETA [Concomitant]
     Dosage: 80 MG, UNK
  9. KEPPRA [Concomitant]
     Dosage: 1500, UNK
  10. CALCIUM [Concomitant]
     Dosage: UNK
  11. MADOPAR [Concomitant]
     Dosage: UNK, AS NEEDED
  12. IBUPROFEN [Concomitant]
     Dosage: UNK, AS NEEDED
  13. CLOPIDOGREL [Concomitant]
     Dosage: UNK
  14. PREDNISOLON                        /00016201/ [Concomitant]
     Dosage: 5 MG, DAILY

REACTIONS (2)
  - Cerebrovascular accident [Unknown]
  - Bronchitis [Not Recovered/Not Resolved]
